FAERS Safety Report 8153595-9 (Version None)
Quarter: 2012Q1

REPORT INFORMATION
  Report Type: 
  Country: None (occurrence: None)
  Receive Date: 20120216
  Receipt Date: 20120216
  Transmission Date: 20120608
  Serious: Yes (Other)
  Sender: FDA-Public Use
  Company Number: None

PATIENT
  Age: 43 Year
  Sex: Male
  Weight: 104.5 kg

DRUGS (2)
  1. PREDNISONE [Concomitant]
  2. AVELOX [Suspect]
     Indication: SINUSITIS
     Dosage: 400 MG 14 PILLS ORAL
     Route: 048
     Dates: start: 20050105, end: 20050118

REACTIONS (5)
  - NEURALGIA [None]
  - HYPOAESTHESIA [None]
  - TREMOR [None]
  - PAIN IN EXTREMITY [None]
  - NERVE INJURY [None]
